FAERS Safety Report 9767453 (Version 2)
Quarter: 2014Q2

REPORT INFORMATION
  Report Type: Spontaneous
  Country: JP (occurrence: JP)
  Receive Date: 20131217
  Receipt Date: 20140502
  Transmission Date: 20141212
  Serious: Yes (Hospitalization, Other)
  Sender: FDA-Public Use
  Company Number: JP-SA-2013SA127208

PATIENT
  Age: 67 Year
  Sex: Male
  Weight: 64 kg

DRUGS (84)
  1. ELPLAT [Suspect]
     Indication: COLON CANCER
     Dosage: IV INFUSION SOLUTION
     Route: 041
     Dates: start: 20120426, end: 20120426
  2. ELPLAT [Suspect]
     Indication: COLON CANCER
     Dosage: IV INFUSION SOLUTION
     Route: 041
     Dates: start: 20120525, end: 20120525
  3. ELPLAT [Suspect]
     Indication: COLON CANCER
     Dosage: IV INFUSION SOLUTION
     Route: 041
     Dates: start: 20120608, end: 20120608
  4. ELPLAT [Suspect]
     Indication: COLON CANCER
     Dosage: IV INFUSION SOLUTION
     Route: 041
     Dates: start: 20120622, end: 20120622
  5. ELPLAT [Suspect]
     Indication: COLON CANCER
     Dosage: IV INFUSION SOLUTION
     Route: 041
     Dates: start: 20120803, end: 20120803
  6. AVASTIN [Suspect]
     Indication: COLON CANCER
     Route: 041
     Dates: start: 20091204, end: 20091204
  7. AVASTIN [Suspect]
     Indication: COLON CANCER
     Route: 041
     Dates: start: 20091225, end: 20091225
  8. AVASTIN [Suspect]
     Indication: COLON CANCER
     Route: 041
     Dates: start: 20100115, end: 20100115
  9. AVASTIN [Suspect]
     Indication: COLON CANCER
     Route: 041
     Dates: start: 20100205, end: 20100205
  10. AVASTIN [Suspect]
     Indication: COLON CANCER
     Route: 041
     Dates: start: 20100226, end: 20100226
  11. AVASTIN [Suspect]
     Indication: COLON CANCER
     Route: 041
     Dates: start: 20100326, end: 20100326
  12. AVASTIN [Suspect]
     Indication: COLON CANCER
     Route: 041
     Dates: start: 20100416, end: 20100416
  13. AVASTIN [Suspect]
     Indication: COLON CANCER
     Route: 041
     Dates: start: 20100528, end: 20100528
  14. AVASTIN [Suspect]
     Indication: COLON CANCER
     Route: 041
     Dates: start: 20100618, end: 20100618
  15. AVASTIN [Suspect]
     Indication: COLON CANCER
     Route: 041
     Dates: start: 20110915, end: 20110915
  16. AVASTIN [Suspect]
     Indication: COLON CANCER
     Route: 041
     Dates: start: 20110930, end: 20110930
  17. AVASTIN [Suspect]
     Indication: COLON CANCER
     Route: 041
     Dates: start: 20111028, end: 20111028
  18. AVASTIN [Suspect]
     Indication: COLON CANCER
     Route: 041
     Dates: start: 20111118, end: 20111118
  19. AVASTIN [Suspect]
     Indication: COLON CANCER
     Route: 041
     Dates: start: 20111216, end: 20111216
  20. AVASTIN [Suspect]
     Indication: COLON CANCER
     Route: 041
     Dates: start: 20120112, end: 20120112
  21. AVASTIN [Suspect]
     Indication: COLON CANCER
     Route: 041
     Dates: start: 20120203, end: 20120203
  22. AVASTIN [Suspect]
     Indication: COLON CANCER
     Route: 041
     Dates: start: 20120302, end: 20120302
  23. AVASTIN [Suspect]
     Indication: COLON CANCER
     Route: 041
     Dates: start: 20120330, end: 20120330
  24. AVASTIN [Suspect]
     Indication: COLON CANCER
     Route: 041
     Dates: start: 20120426, end: 20120426
  25. AVASTIN [Suspect]
     Indication: COLON CANCER
     Route: 041
     Dates: start: 20120525, end: 20120525
  26. AVASTIN [Suspect]
     Indication: COLON CANCER
     Route: 041
     Dates: start: 20120608, end: 20120608
  27. AVASTIN [Suspect]
     Indication: COLON CANCER
     Route: 041
     Dates: start: 20120622, end: 20120622
  28. AVASTIN [Suspect]
     Indication: COLON CANCER
     Route: 041
     Dates: start: 20120803, end: 20120803
  29. XELODA [Concomitant]
     Indication: COLON CANCER
     Dates: start: 200910
  30. XELODA [Concomitant]
     Indication: COLON CANCER
     Dates: start: 20091204, end: 20100702
  31. CALCIUM LEVOFOLINATE [Concomitant]
     Route: 042
     Dates: start: 20110915, end: 20120803
  32. DEXART [Concomitant]
     Dates: start: 20091204, end: 20120803
  33. POLARAMINE [Concomitant]
     Dates: start: 20110915, end: 20120803
  34. PYDOXAL [Concomitant]
     Dates: start: 20100618
  35. NEUTROGIN [Concomitant]
     Dates: start: 20120705, end: 20120706
  36. KYTRIL [Concomitant]
     Dates: start: 20091204, end: 20120803
  37. GAMOFA [Concomitant]
     Dates: start: 20110915, end: 20120803
  38. FLUOROURACIL [Suspect]
     Indication: COLON CANCER
     Route: 040
     Dates: start: 20110915, end: 20110915
  39. FLUOROURACIL [Suspect]
     Indication: COLON CANCER
     Dosage: CONTINUOUS INFUSION, ADMINISTERED ONCE IN TWO DAYS
     Route: 041
     Dates: start: 20110915, end: 20110915
  40. FLUOROURACIL [Suspect]
     Indication: COLON CANCER
     Route: 040
     Dates: start: 20110930, end: 20110930
  41. FLUOROURACIL [Suspect]
     Indication: COLON CANCER
     Dosage: ADMINISTERED ONCE IN TWO DAYS
     Route: 041
     Dates: start: 20110930, end: 20110930
  42. FLUOROURACIL [Suspect]
     Indication: COLON CANCER
     Route: 040
     Dates: start: 20111028, end: 20111028
  43. FLUOROURACIL [Suspect]
     Indication: COLON CANCER
     Dosage: ADMINISTERED ONCE IN TWO DAYS
     Route: 041
     Dates: start: 20111028, end: 20111028
  44. FLUOROURACIL [Suspect]
     Indication: COLON CANCER
     Route: 040
     Dates: start: 20111118, end: 20111118
  45. FLUOROURACIL [Suspect]
     Indication: COLON CANCER
     Dosage: ADMINISTERED ONCE IN TWO DAYS
     Route: 041
     Dates: start: 20111118, end: 20111118
  46. FLUOROURACIL [Suspect]
     Indication: COLON CANCER
     Route: 040
     Dates: start: 20111216, end: 20111216
  47. FLUOROURACIL [Suspect]
     Indication: COLON CANCER
     Dosage: ADMINISTERED ONCE IN TWO DAYS
     Route: 041
     Dates: start: 20111216, end: 20111216
  48. FLUOROURACIL [Suspect]
     Indication: COLON CANCER
     Route: 040
     Dates: start: 20120112, end: 20120112
  49. FLUOROURACIL [Suspect]
     Indication: COLON CANCER
     Dosage: ADMINISTERED ONCE IN TWO DAYS
     Route: 041
     Dates: start: 20120112, end: 20120112
  50. FLUOROURACIL [Suspect]
     Indication: COLON CANCER
     Route: 040
     Dates: start: 20120203, end: 20120203
  51. FLUOROURACIL [Suspect]
     Indication: COLON CANCER
     Dosage: ADMINISTERED ONCE IN TWO DAYS
     Route: 041
     Dates: start: 20120203, end: 20120203
  52. FLUOROURACIL [Suspect]
     Indication: COLON CANCER
     Route: 040
     Dates: start: 20120302, end: 20120302
  53. FLUOROURACIL [Suspect]
     Indication: COLON CANCER
     Dosage: ADMINISTERED ONCE IN TWO DAYS
     Route: 041
     Dates: start: 20120302, end: 20120302
  54. FLUOROURACIL [Suspect]
     Indication: COLON CANCER
     Route: 040
     Dates: start: 20120330, end: 20120330
  55. FLUOROURACIL [Suspect]
     Indication: COLON CANCER
     Dosage: ADMINISTERED ONCE IN TWO DAYS
     Route: 041
     Dates: start: 20120330, end: 20120330
  56. FLUOROURACIL [Suspect]
     Indication: COLON CANCER
     Route: 040
     Dates: start: 20120426, end: 20120426
  57. FLUOROURACIL [Suspect]
     Indication: COLON CANCER
     Dosage: ADMINISTERED ONCE IN TWO DAYS
     Route: 041
     Dates: start: 20120426, end: 20120426
  58. FLUOROURACIL [Suspect]
     Indication: COLON CANCER
     Route: 040
     Dates: start: 20120525, end: 20120525
  59. FLUOROURACIL [Suspect]
     Indication: COLON CANCER
     Dosage: ADMINISTERED ONCE IN TWO DAYS
     Route: 041
     Dates: start: 20120525, end: 20120525
  60. FLUOROURACIL [Suspect]
     Indication: COLON CANCER
     Route: 040
     Dates: start: 20120608, end: 20120608
  61. FLUOROURACIL [Suspect]
     Indication: COLON CANCER
     Dosage: ADMINISTERED ONCE IN TWO DAYS
     Route: 041
     Dates: start: 20120608, end: 20120608
  62. FLUOROURACIL [Suspect]
     Indication: COLON CANCER
     Route: 040
     Dates: start: 20120622, end: 20120622
  63. FLUOROURACIL [Suspect]
     Indication: COLON CANCER
     Dosage: ADMINISTERED ONCE IN TWO DAYS
     Route: 041
     Dates: start: 20120622, end: 20120622
  64. FLUOROURACIL [Suspect]
     Indication: COLON CANCER
     Route: 040
     Dates: start: 20120803, end: 20120803
  65. FLUOROURACIL [Suspect]
     Indication: COLON CANCER
     Dosage: ADMINISTERED ONCE IN TWO DAYS
     Route: 041
     Dates: start: 20120803, end: 20120803
  66. CALCIUM LEVOFOLINATE [Suspect]
     Indication: COLON CANCER
     Dosage: IV INFUSION
     Route: 041
     Dates: start: 201108
  67. ELPLAT [Suspect]
     Indication: COLON CANCER
     Dosage: IV INFUSION SOLUTION
     Route: 041
     Dates: start: 20091204, end: 20091204
  68. ELPLAT [Suspect]
     Indication: COLON CANCER
     Dosage: IV INFUSION SOLUTION
     Route: 041
     Dates: start: 20091225, end: 20091225
  69. ELPLAT [Suspect]
     Indication: COLON CANCER
     Dosage: IV INFUSION SOLUTION
     Route: 041
     Dates: start: 20100115, end: 20100115
  70. ELPLAT [Suspect]
     Indication: COLON CANCER
     Dosage: IV INFUSION SOLUTION
     Route: 041
     Dates: start: 20100205, end: 20100205
  71. ELPLAT [Suspect]
     Indication: COLON CANCER
     Dosage: IV INFUSION SOLUTION
     Route: 041
     Dates: start: 20100226, end: 20100226
  72. ELPLAT [Suspect]
     Indication: COLON CANCER
     Dosage: IV INFUSION SOLUTION
     Route: 041
     Dates: start: 20100326, end: 20100326
  73. ELPLAT [Suspect]
     Indication: COLON CANCER
     Dosage: IV INFUSION SOLUTION
     Route: 041
     Dates: start: 20100416, end: 20100416
  74. ELPLAT [Suspect]
     Indication: COLON CANCER
     Dosage: IV INFUSION SOLUTION
     Route: 041
     Dates: start: 20100528, end: 20100528
  75. ELPLAT [Suspect]
     Indication: COLON CANCER
     Dosage: IV INFUSION SOLUTION
     Route: 041
     Dates: start: 20100618, end: 20100618
  76. ELPLAT [Suspect]
     Indication: COLON CANCER
     Dosage: IV INFUSION SOLUTION
     Route: 041
     Dates: start: 20110915, end: 20110915
  77. ELPLAT [Suspect]
     Indication: COLON CANCER
     Dosage: IV INFUSION SOLUTION
     Route: 041
     Dates: start: 20110930, end: 20110930
  78. ELPLAT [Suspect]
     Indication: COLON CANCER
     Dosage: IV INFUSION SOLUTION
     Route: 041
     Dates: start: 20111028, end: 20111028
  79. ELPLAT [Suspect]
     Indication: COLON CANCER
     Dosage: IV INFUSION SOLUTION
     Route: 041
     Dates: start: 20111118, end: 20111118
  80. ELPLAT [Suspect]
     Indication: COLON CANCER
     Dosage: IV INFUSION SOLUTION
     Route: 041
     Dates: start: 20111216, end: 20111216
  81. ELPLAT [Suspect]
     Indication: COLON CANCER
     Dosage: IV INFUSION SOLUTION
     Route: 041
     Dates: start: 20120112, end: 20120112
  82. ELPLAT [Suspect]
     Indication: COLON CANCER
     Dosage: IV INFUSION SOLUTION
     Route: 041
     Dates: start: 20120203, end: 20120203
  83. ELPLAT [Suspect]
     Indication: COLON CANCER
     Dosage: IV INFUSION SOLUTION
     Route: 041
     Dates: start: 20120302, end: 20120302
  84. ELPLAT [Suspect]
     Indication: COLON CANCER
     Dosage: IV INFUSION SOLUTION
     Route: 041
     Dates: start: 20120330, end: 20120330

REACTIONS (8)
  - Prostatitis [Recovered/Resolved]
  - Varices oesophageal [Recovered/Resolved]
  - Portal hypertension [Recovered/Resolved]
  - Neuropathy peripheral [Recovering/Resolving]
  - Platelet count decreased [Recovered/Resolved]
  - White blood cell count decreased [Recovered/Resolved]
  - Neutrophil count decreased [Recovering/Resolving]
  - Splenomegaly [Recovered/Resolved]
